FAERS Safety Report 5489212-6 (Version None)
Quarter: 2007Q4

REPORT INFORMATION
  Report Type: 
  Country: None (occurrence: None)
  Receive Date: 20071016
  Receipt Date: 20071003
  Transmission Date: 20080405
  Serious: Yes (Death, Hospitalization)
  Sender: FDA-Public Use
  Company Number: 013176

PATIENT
  Age: 50 Year
  Sex: Female

DRUGS (7)
  1. PRIALT [Suspect]
     Indication: PAIN
     Dosage: 0.15 UG, ONCE/HOUR, INTRATHECAL
     Route: 037
  2. PRIALT [Suspect]
     Indication: PANCREATITIS
     Dosage: 0.15 UG, ONCE/HOUR, INTRATHECAL
     Route: 037
  3. DILAUDID [Concomitant]
  4. MS CONTIN [Concomitant]
  5. PERIACTIN [Concomitant]
  6. BENTYL [Concomitant]
  7. HYOSCINE HBR HYT [Concomitant]

REACTIONS (4)
  - ANOREXIA [None]
  - DISBACTERIOSIS [None]
  - MALNUTRITION [None]
  - NO THERAPEUTIC RESPONSE [None]
